FAERS Safety Report 10305026 (Version 1)
Quarter: 2014Q3

REPORT INFORMATION
  Report Type: Spontaneous
  Country: US (occurrence: None)
  Receive Date: 20140711
  Receipt Date: 20140711
  Transmission Date: 20150326
  Serious: Yes (Death)
  Sender: FDA-Public Use
  Company Number: None

PATIENT
  Age: 80 Year
  Sex: Female
  Weight: 68.04 kg

DRUGS (1)
  1. DILAUDID [Suspect]
     Active Substance: HYDROMORPHONE HYDROCHLORIDE

REACTIONS (5)
  - Abdominal pain [None]
  - Medication monitoring error [None]
  - Oropharyngeal pain [None]
  - Small intestinal obstruction [None]
  - Cardio-respiratory arrest [None]

NARRATIVE: CASE EVENT DATE: 20140428
